FAERS Safety Report 24388767 (Version 1)
Quarter: 2024Q4

REPORT INFORMATION
  Report Type: Report from Study
  Country: US (occurrence: US)
  Receive Date: 20241002
  Receipt Date: 20241002
  Transmission Date: 20250115
  Serious: Yes (Hospitalization)
  Sender: JAZZ
  Company Number: US-JAZZ PHARMACEUTICALS-2024-US-012885

PATIENT
  Sex: Male

DRUGS (2)
  1. EPIDIOLEX [Suspect]
     Active Substance: CANNABIDIOL
     Indication: Epilepsy
     Dosage: 3.2 MILLILITER, BID
     Route: 048
     Dates: start: 202405
  2. EPIDIOLEX [Suspect]
     Active Substance: CANNABIDIOL
     Dosage: 3.2 MILLILITER, BID
     Route: 048
     Dates: start: 202405

REACTIONS (4)
  - Hospitalisation [Unknown]
  - Balance disorder [Unknown]
  - Fatigue [Unknown]
  - Off label use [Unknown]
